FAERS Safety Report 5125301-3 (Version None)
Quarter: 2006Q4

REPORT INFORMATION
  Report Type: 
  Country: None (occurrence: None)
  Receive Date: 20061006
  Receipt Date: 20060925
  Transmission Date: 20070319
  Serious: Yes (Hospitalization, Other)
  Sender: FDA-Public Use
  Company Number: 2006117801

PATIENT
  Sex: Female
  Weight: 43.0917 kg

DRUGS (6)
  1. LIPITOR [Suspect]
     Indication: BLOOD CHOLESTEROL INCREASED
     Dosage: 40 MG (40 MG, 1 IN 1 D)
  2. CHANTIX [Suspect]
     Indication: SMOKING CESSATION THERAPY
     Dosage: 0.5 MG 0.5 MG, 1 IN 1 D)
     Dates: start: 20060911
  3. NORVASC [Suspect]
     Indication: HYPERTENSION
     Dosage: 7.5 MG (7.5 MG, 1 IN 1 D)
  4. ALPRAZOLAM [Concomitant]
  5. ZETIA [Concomitant]
  6. ATENOLOL [Concomitant]

REACTIONS (9)
  - DRUG DOSE OMISSION [None]
  - HYPERTENSION [None]
  - INSOMNIA [None]
  - LUNG DISORDER [None]
  - NAUSEA [None]
  - NICOTINE DEPENDENCE [None]
  - RETCHING [None]
  - SURGERY [None]
  - VOMITING [None]
